FAERS Safety Report 4646927-7 (Version None)
Quarter: 2005Q2

REPORT INFORMATION
  Report Type: 
  Country: None (occurrence: None)
  Receive Date: 20050331
  Receipt Date: 20050214
  Transmission Date: 20051028
  Serious: No
  Sender: FDA-Public Use
  Company Number: 05P-163-0290576-00

PATIENT
  Age: 74 Year
  Sex: Female
  Weight: 78.0187 kg

DRUGS (18)
  1. HUMIRA [Suspect]
     Indication: RHEUMATOID ARTHRITIS
     Dosage: 40 MG, 1 IN 2 WK, SUBCUTANEOUS
     Route: 058
     Dates: start: 20040101, end: 20050109
  2. PREDNISONE [Concomitant]
  3. VERAPAMIL [Concomitant]
  4. UNIVASC [Concomitant]
  5. COUMADIN [Concomitant]
  6. DIGOXIN [Concomitant]
  7. DORZOLAMIDE HYDROCHLORIDE [Concomitant]
  8. CYPROHEPTADINE HYDROCHLORIDE [Concomitant]
  9. SALBUTAMOL [Concomitant]
  10. BUGESONIDE [Concomitant]
  11. SPIRIVA [Concomitant]
  12. SERETIDE MITE [Concomitant]
  13. MULTI-VITAMINS [Concomitant]
  14. CALCIUM WITH VITAMIN D [Concomitant]
  15. ASCORBIC ACID [Concomitant]
  16. TOCOPHEROL CONCENTRATE CAP [Concomitant]
  17. OCUVITE [Concomitant]
  18. OXYGEN [Concomitant]

REACTIONS (2)
  - COUGH [None]
  - NASOPHARYNGITIS [None]
